FAERS Safety Report 20222261 (Version 1)
Quarter: 2021Q4

REPORT INFORMATION
  Report Type: Spontaneous
  Country: US (occurrence: None)
  Receive Date: 20211223
  Receipt Date: 20211223
  Transmission Date: 20220303
  Serious: Yes (Hospitalization)
  Sender: FDA-Public Use
  Company Number: None

PATIENT
  Sex: Female
  Weight: 54.2 kg

DRUGS (2)
  1. CARBOPLATIN [Suspect]
     Active Substance: CARBOPLATIN
     Dates: end: 20211208
  2. TAXOL [Suspect]
     Active Substance: PACLITAXEL
     Dates: end: 20211208

REACTIONS (7)
  - Chest pain [None]
  - Sepsis [None]
  - Lactic acidosis [None]
  - Pneumonia [None]
  - Dyspnoea [None]
  - Mental status changes [None]
  - Therapy interrupted [None]

NARRATIVE: CASE EVENT DATE: 20211211
